FAERS Safety Report 9830013 (Version 1)
Quarter: 2014Q1

REPORT INFORMATION
  Report Type: Spontaneous
  Country: US (occurrence: US)
  Receive Date: 20140120
  Receipt Date: 20140120
  Transmission Date: 20141002
  Serious: No
  Sender: FDA-Public Use
  Company Number: US-009507513-1401USA008013

PATIENT
  Sex: Male

DRUGS (1)
  1. REMERON [Suspect]
     Dosage: UNK
     Route: 048

REACTIONS (1)
  - Blood triglycerides increased [Unknown]
